FAERS Safety Report 8508993-8 (Version None)
Quarter: 2012Q3

REPORT INFORMATION
  Report Type: 
  Country: None (occurrence: None)
  Receive Date: 20120713
  Receipt Date: 20120706
  Transmission Date: 20120928
  Serious: Yes (Other)
  Sender: FDA-Public Use
  Company Number: US-PFIZER INC-2012162421

PATIENT
  Sex: Female

DRUGS (1)
  1. DETROL LA [Suspect]

REACTIONS (2)
  - DEMENTIA ALZHEIMER'S TYPE [None]
  - BLADDER PROLAPSE [None]
